FAERS Safety Report 9391832 (Version 1)
Quarter: 2013Q3

REPORT INFORMATION
  Report Type: Spontaneous
  Country: US (occurrence: US)
  Receive Date: 20130709
  Receipt Date: 20130709
  Transmission Date: 20140515
  Serious: No
  Sender: FDA-Public Use
  Company Number: US-009507513-1307USA004135

PATIENT
  Age: 71 Year
  Sex: Female

DRUGS (4)
  1. NASONEX [Suspect]
     Indication: HYPERSENSITIVITY
     Dosage: UNK
     Route: 045
     Dates: start: 20130524, end: 20130530
  2. LEVOTHYROXINE SODIUM [Concomitant]
     Dosage: 88 MICROGRAM, QD
  3. AMLODIPINE BESYLATE [Concomitant]
     Dosage: 5 MG, QD
  4. METOPROLOL [Concomitant]
     Dosage: 100 MG, BID

REACTIONS (2)
  - Headache [Recovering/Resolving]
  - Arthralgia [Recovering/Resolving]
